FAERS Safety Report 19780100 (Version 2)
Quarter: 2021Q3

REPORT INFORMATION
  Report Type: Report from Study
  Country: US (occurrence: US)
  Receive Date: 20210902
  Receipt Date: 20210913
  Transmission Date: 20211014
  Serious: Yes (Hospitalization, Other)
  Sender: FDA-Public Use
  Company Number: US-BRISTOL-MYERS SQUIBB COMPANY-BMS-2021-087752

PATIENT
  Age: 73 Year
  Sex: Male
  Weight: 113.39 kg

DRUGS (1)
  1. NIVOLUMAB [Suspect]
     Active Substance: NIVOLUMAB
     Indication: PROPHYLAXIS
     Dosage: UNK
     Route: 042
     Dates: start: 202104

REACTIONS (7)
  - Head injury [Unknown]
  - Feeling abnormal [Unknown]
  - Intentional product use issue [Unknown]
  - Mental disorder [Unknown]
  - Paralysis [Unknown]
  - Fall [Unknown]
  - Rib fracture [Unknown]

NARRATIVE: CASE EVENT DATE: 2021
